FAERS Safety Report 18133234 (Version 1)
Quarter: 2020Q3

REPORT INFORMATION
  Report Type: Spontaneous
  Country: TZ (occurrence: TZ)
  Receive Date: 20200811
  Receipt Date: 20200811
  Transmission Date: 20201103
  Serious: Yes (Life-Threatening, Other)
  Sender: FDA-Public Use
  Company Number: TZ-AUROBINDO-AUR-APL-2020-038325

PATIENT
  Age: 31 Year
  Sex: Female

DRUGS (11)
  1. PACLITAXEL. [Concomitant]
     Active Substance: PACLITAXEL
     Indication: CHEMOTHERAPY
     Dosage: 135 MILLIGRAM/SQ. METER, CYCLICAL (EVERY 3 WEEKS FOR TOTAL OF 6 CYCLES)
     Route: 065
  2. RANITIDINE. [Concomitant]
     Active Substance: RANITIDINE
     Indication: ANAPHYLAXIS PROPHYLAXIS
     Dosage: UNK
     Route: 065
  3. BLEOMYCIN [Concomitant]
     Active Substance: BLEOMYCIN SULFATE
     Indication: CHEMOTHERAPY
     Dosage: 15 UNITS/M2, CYCLICAL
     Route: 065
  4. VINCRISTINE [Concomitant]
     Active Substance: VINCRISTINE
     Dosage: 2 MILLIGRAM
     Route: 065
  5. DOXORUBICIN [Concomitant]
     Active Substance: DOXORUBICIN
     Indication: CHEMOTHERAPY
     Dosage: 2530 MILLIGRAM/SQ. METER, CYCLICAL (EVERY 3 WEEKS)
     Route: 065
  6. EFAVIRENZ, LAMIVUDINE AND TENOFOVIR DISOPROXIL FUMARATE [Suspect]
     Active Substance: EFAVIRENZ\LAMIVUDINE\TENOFOVIR DISOPROXIL FUMARATE
     Indication: HIV INFECTION
     Dosage: UNK
     Route: 065
  7. COTRIMOXAZOLE [Concomitant]
     Active Substance: SULFAMETHOXAZOLE\TRIMETHOPRIM
     Indication: PROPHYLAXIS
     Dosage: UNK
     Route: 065
  8. CHLORPHENAMINE [Concomitant]
     Active Substance: CHLORPHENIRAMINE MALEATE
     Indication: ANAPHYLAXIS PROPHYLAXIS
     Dosage: UNK
     Route: 065
  9. VINCRISTINE [Concomitant]
     Active Substance: VINCRISTINE
     Indication: CHEMOTHERAPY
     Dosage: 1.4 MILLIGRAM/SQ. METER (MAX 2MG)
     Route: 065
  10. BLEOMYCIN [Concomitant]
     Active Substance: BLEOMYCIN SULFATE
     Dosage: 15 UNITS/M2, CYCLICAL (INTENSIFIED CYCLES)
     Route: 065
  11. DEXAMETHASONE. [Concomitant]
     Active Substance: DEXAMETHASONE
     Indication: ANAPHYLAXIS PROPHYLAXIS
     Dosage: UNK
     Route: 065

REACTIONS (10)
  - Immune reconstitution inflammatory syndrome associated Kaposi^s sarcoma [Unknown]
  - Condition aggravated [Unknown]
  - Haematochezia [Unknown]
  - Abdominal pain [Unknown]
  - Exposure during pregnancy [Unknown]
  - Dysphagia [Unknown]
  - Dyspnoea [Unknown]
  - Lymphadenopathy [Unknown]
  - Haematemesis [Unknown]
  - Oral candidiasis [Unknown]
